FAERS Safety Report 7617371-5 (Version None)
Quarter: 2011Q3

REPORT INFORMATION
  Report Type: 
  Country: None (occurrence: None)
  Receive Date: 20110718
  Receipt Date: 20110716
  Transmission Date: 20111222
  Serious: Yes (Other)
  Sender: FDA-Public Use
  Company Number: US-PFIZER INC-2011161148

PATIENT
  Sex: Female
  Weight: 61.224 kg

DRUGS (4)
  1. GABAPENTIN [Suspect]
     Indication: NERVE COMPRESSION
     Dosage: UNK
     Dates: start: 20110430
  2. GABAPENTIN [Suspect]
     Indication: ARTERIAL STENOSIS
  3. GABAPENTIN [Suspect]
     Indication: PAIN IN EXTREMITY
  4. GABAPENTIN [Suspect]
     Indication: NEUROPATHY PERIPHERAL

REACTIONS (1)
  - DIPLOPIA [None]
